FAERS Safety Report 8065750-7 (Version None)
Quarter: 2012Q1

REPORT INFORMATION
  Report Type: 
  Country: None (occurrence: None)
  Receive Date: 20120124
  Receipt Date: 20120117
  Transmission Date: 20120608
  Serious: Yes (Hospitalization)
  Sender: FDA-Public Use
  Company Number: US-PFIZER INC-2011315756

PATIENT
  Sex: Female

DRUGS (6)
  1. SUTENT [Suspect]
     Indication: RENAL CELL CARCINOMA
     Dosage: 50 MG, 1X/DAY (PO QD 4 WEEKS ON 2 WEEKS OFF)
     Route: 048
     Dates: start: 20111115, end: 20111201
  2. ASCORBIC ACID [Concomitant]
     Dosage: 1 TAB, ON AT INTAKE
     Route: 048
     Dates: start: 20111017
  3. ACETYLSALICYLIC ACID [Concomitant]
     Dosage: 81 MG, 1X/DAY
     Route: 048
     Dates: start: 20120110
  4. ZOLPIDEM [Concomitant]
     Dosage: 5 MG (ON AT INTAKE, 1/2 TAB OF 10 MG)
     Route: 048
     Dates: start: 20111017
  5. ACETYLSALICYLIC ACID [Concomitant]
     Dosage: 81 MG, 1X/DAY (EVERY DAY, ON AT INTAKE)
     Route: 048
     Dates: start: 20111017
  6. SUTENT [Suspect]
     Indication: METASTATIC RENAL CELL CARCINOMA

REACTIONS (5)
  - CHILLS [None]
  - MALAISE [None]
  - MYALGIA [None]
  - PYREXIA [None]
  - ARTHRALGIA [None]
